FAERS Safety Report 6282231-1 (Version None)
Quarter: 2009Q3

REPORT INFORMATION
  Report Type: 
  Country: None (occurrence: None)
  Receive Date: 20090724
  Receipt Date: 20090713
  Transmission Date: 20100115
  Serious: Yes (Other)
  Sender: FDA-Public Use
  Company Number: US-WYE-H10116709

PATIENT
  Sex: Female
  Weight: 53.12 kg

DRUGS (8)
  1. EFFEXOR XR [Suspect]
     Indication: DEPRESSION
     Route: 048
     Dates: start: 20080501, end: 20090101
  2. EFFEXOR XR [Suspect]
     Dosage: TAPERED TO 75 MG EVERY OTHER DAY
     Route: 048
     Dates: start: 20090101, end: 20090701
  3. LAMICTAL [Concomitant]
     Dosage: UNKNOWN
     Dates: start: 20090101
  4. ZOCOR [Concomitant]
  5. SYNTHROID [Concomitant]
  6. ATENOLOL [Concomitant]
  7. EFFEXOR [Suspect]
     Indication: DEPRESSION
     Route: 048
     Dates: start: 20090701
  8. DEPAKOTE [Concomitant]
     Dosage: UNKNOWN
     Dates: start: 20090101

REACTIONS (6)
  - ARTHRALGIA [None]
  - DRUG WITHDRAWAL SYNDROME [None]
  - INTENTIONAL DRUG MISUSE [None]
  - MENTAL DISORDER [None]
  - NIGHTMARE [None]
  - POOR QUALITY SLEEP [None]
